FAERS Safety Report 7501265-X (Version None)
Quarter: 2011Q2

REPORT INFORMATION
  Report Type: 
  Country: None (occurrence: None)
  Receive Date: 20110524
  Receipt Date: 20110513
  Transmission Date: 20111010
  Serious: Yes (Other)
  Sender: FDA-Public Use
  Company Number: US-ELI_LILLY_AND_COMPANY-US201104005734

PATIENT
  Age: 6 Year
  Sex: Male

DRUGS (1)
  1. HUMATROPE [Suspect]
     Indication: GROWTH HORMONE DEFICIENCY
     Dosage: 0.6 MG, AT NIGHT
     Dates: start: 20110418

REACTIONS (4)
  - DROOLING [None]
  - UNRESPONSIVE TO STIMULI [None]
  - EYE DISORDER [None]
  - LETHARGY [None]
